FAERS Safety Report 23750193 (Version 2)
Quarter: 2024Q2

REPORT INFORMATION
  Report Type: Spontaneous
  Country: US (occurrence: US)
  Receive Date: 20240417
  Receipt Date: 20240429
  Transmission Date: 20240716
  Serious: No
  Sender: FDA-Public Use
  Company Number: US-SUN PHARMACEUTICAL INDUSTRIES LTD-2024R1-442692

PATIENT
  Age: 57 Year
  Sex: Female

DRUGS (1)
  1. LORATADINE [Suspect]
     Active Substance: LORATADINE
     Indication: Product used for unknown indication
     Dosage: UNK
     Route: 065
     Dates: start: 202404, end: 202404

REACTIONS (4)
  - Hypersensitivity [Unknown]
  - Therapy cessation [Unknown]
  - Obstructive airways disorder [Unknown]
  - Wheezing [Unknown]

NARRATIVE: CASE EVENT DATE: 20240401
